FAERS Safety Report 23345680 (Version 1)
Quarter: 2023Q4

REPORT INFORMATION
  Report Type: Other
  Country: US (occurrence: None)
  Receive Date: 20231228
  Receipt Date: 20231228
  Transmission Date: 20240110
  Serious: No
  Sender: FDA-Public Use
  Company Number: US-ROCHE-3482253

PATIENT
  Age: 71 Year
  Sex: Female
  Weight: 68.1 kg

DRUGS (6)
  1. OCREVUS [Suspect]
     Active Substance: OCRELIZUMAB
     Indication: Relapsing-remitting multiple sclerosis
     Route: 042
     Dates: start: 20170719
  2. OCREVUS [Suspect]
     Active Substance: OCRELIZUMAB
     Indication: Primary progressive multiple sclerosis
  3. GABAPENTIN [Concomitant]
     Active Substance: GABAPENTIN
  4. MELATONIN [Concomitant]
     Active Substance: MELATONIN
  5. SOLIFENACIN [Concomitant]
     Active Substance: SOLIFENACIN
  6. ZANAFLEX [Concomitant]
     Active Substance: TIZANIDINE HYDROCHLORIDE

REACTIONS (2)
  - Fall [Unknown]
  - Demyelination [Not Recovered/Not Resolved]
